FAERS Safety Report 8914877 (Version 2)
Quarter: 2012Q4

REPORT INFORMATION
  Report Type: 
  Country: DE (occurrence: DE)
  Receive Date: 20121116
  Receipt Date: 20121128
  Transmission Date: 20130627
  Serious: Yes (Hospitalization)
  Sender: FDA-Public Use
  Company Number: DE-ROCHE-1153796

PATIENT
  Age: 78 Year
  Sex: Female

DRUGS (1)
  1. ACTILYSE [Suspect]
     Indication: ISCHAEMIC STROKE
     Route: 065

REACTIONS (4)
  - Cerebral hyperperfusion syndrome [Unknown]
  - Cerebral artery embolism [Unknown]
  - Brain oedema [Unknown]
  - Nervous system disorder [Unknown]
